FAERS Safety Report 21562635 (Version 1)
Quarter: 2022Q4

REPORT INFORMATION
  Report Type: Spontaneous
  Country: US (occurrence: US)
  Receive Date: 20221107
  Receipt Date: 20221107
  Transmission Date: 20230112
  Serious: Yes (Hospitalization, Other)
  Sender: FDA-Public Use
  Company Number: US-009507513-2211USA002006

PATIENT
  Age: 65 Year
  Sex: Female

DRUGS (2)
  1. KEYTRUDA [Suspect]
     Active Substance: PEMBROLIZUMAB
     Indication: Endometrial cancer metastatic
     Dosage: UNK
     Dates: start: 20220518
  2. LENVATINIB MESYLATE [Suspect]
     Active Substance: LENVATINIB MESYLATE
     Indication: Endometrial cancer metastatic
     Dosage: 20 MILLIGRAM
     Route: 048
     Dates: start: 20220518, end: 20220901

REACTIONS (9)
  - Malignant neoplasm progression [Unknown]
  - Road traffic accident [Unknown]
  - Posterior reversible encephalopathy syndrome [Unknown]
  - Urinary tract infection [Unknown]
  - Balance disorder [Unknown]
  - Blood sodium decreased [Unknown]
  - Fatigue [Unknown]
  - Insomnia [Unknown]
  - Blood pressure increased [Unknown]

NARRATIVE: CASE EVENT DATE: 20220101
